FAERS Safety Report 7814798-3 (Version None)
Quarter: 2011Q4

REPORT INFORMATION
  Report Type: 
  Country: None (occurrence: None)
  Receive Date: 20111014
  Receipt Date: 20110929
  Transmission Date: 20120403
  Serious: Yes (Hospitalization, Other)
  Sender: FDA-Public Use
  Company Number: TW-ROCHE-GNE321930

PATIENT
  Sex: Male
  Weight: 65 kg

DRUGS (9)
  1. JANUVIA [Concomitant]
     Indication: DIABETES MELLITUS
     Dosage: UNK
     Dates: start: 20100429
  2. LUCENTIS [Suspect]
     Dosage: UNK
     Route: 050
     Dates: start: 20110314
  3. RASILEZ [Concomitant]
     Indication: HYPERTENSION
     Dates: start: 20100225
  4. DIOVAN [Concomitant]
     Indication: HYPERTENSION
     Dosage: UNK
     Dates: start: 20110428
  5. KENTAMIN [Concomitant]
     Indication: NUTRITIONAL SUPPORT
     Dosage: UNK
     Dates: start: 20100925
  6. WARFARIN SODIUM [Concomitant]
     Indication: CEREBRAL ARTERY OCCLUSION
     Dosage: UNK
     Route: 048
     Dates: start: 20100401
  7. WARFARIN SODIUM [Concomitant]
     Route: 040
     Dates: start: 20100401
  8. LUCENTIS [Suspect]
     Indication: CYSTOID MACULAR OEDEMA
     Route: 050
     Dates: start: 20110117
  9. LUCENTIS [Suspect]
     Dosage: 2.3 MG, UNK
     Route: 050
     Dates: start: 20110509

REACTIONS (4)
  - CEREBROVASCULAR ACCIDENT [None]
  - PROTHROMBIN TIME PROLONGED [None]
  - HAEMORRHAGE INTRACRANIAL [None]
  - GLYCOSYLATED HAEMOGLOBIN INCREASED [None]
